APPROVED DRUG PRODUCT: IBUPROFEN
Active Ingredient: IBUPROFEN
Strength: 100MG/5ML
Dosage Form/Route: SUSPENSION;ORAL
Application: A210602 | Product #001
Applicant: ANNORA PHARMA PRIVATE LTD
Approved: Nov 23, 2018 | RLD: No | RS: No | Type: OTC